FAERS Safety Report 7361958-4 (Version None)
Quarter: 2011Q1

REPORT INFORMATION
  Report Type: 
  Country: None (occurrence: None)
  Receive Date: 20110318
  Receipt Date: 20110314
  Transmission Date: 20110831
  Serious: Yes (Death)
  Sender: FDA-Public Use
  Company Number: PHHY2011JP20922

PATIENT
  Age: 53 Year
  Sex: Male

DRUGS (9)
  1. ETOPOSIDE [Suspect]
     Indication: IMMUNOSUPPRESSION
     Dosage: 100 MG, UNK
  2. PREDNISOLONE [Suspect]
     Indication: IMMUNOSUPPRESSION
  3. RANIMUSTINE [Suspect]
     Indication: IMMUNOSUPPRESSION
  4. METHOTREXATE [Suspect]
     Indication: IMMUNOSUPPRESSION
  5. VINCRISTINE [Suspect]
     Indication: IMMUNOSUPPRESSION
  6. DOXORUBICIN HCL [Suspect]
     Indication: IMMUNOSUPPRESSION
  7. CYTARABINE [Suspect]
     Indication: IMMUNOSUPPRESSION
  8. RITUXIMAB [Suspect]
     Indication: IMMUNOSUPPRESSION
  9. CYCLOPHOSPHAMIDE [Suspect]
     Indication: IMMUNOSUPPRESSION

REACTIONS (1)
  - HEPATITIS B [None]
